FAERS Safety Report 4295716-4 (Version None)
Quarter: 2004Q1

REPORT INFORMATION
  Report Type: 
  Country: None (occurrence: None)
  Receive Date: 20040216
  Receipt Date: 20031017
  Transmission Date: 20041129
  Serious: No
  Sender: FDA-Public Use
  Company Number: US-GLAXOSMITHKLINE-A0430585A

PATIENT
  Age: 50 Year
  Sex: Male
  Weight: 77.3 kg

DRUGS (2)
  1. LAMICTAL [Suspect]
     Indication: EPILEPSY
     Dosage: 300MG TWICE PER DAY
     Route: 048
  2. INSULIN [Concomitant]

REACTIONS (2)
  - GINGIVAL BLEEDING [None]
  - GINGIVAL HYPERPLASIA [None]
